FAERS Safety Report 5428921-1 (Version None)
Quarter: 2007Q3

REPORT INFORMATION
  Report Type: 
  Country: None (occurrence: None)
  Receive Date: 20070829
  Receipt Date: 20070823
  Transmission Date: 20080115
  Serious: Yes (Other)
  Sender: FDA-Public Use
  Company Number: US-JNJFOC-20070805112

PATIENT
  Age: 27 Year
  Sex: Male

DRUGS (9)
  1. MOTRIN IB [Suspect]
  2. MOTRIN IB [Suspect]
     Indication: PAIN
     Dosage: DOSE UNKNOWN
  3. EXTRA STRENGTH TYLENOL [Suspect]
  4. EXTRA STRENGTH TYLENOL [Suspect]
     Indication: PAIN
     Dosage: DOSE UNKNOWN
  5. EXTRA STRENGTH TYLENOL [Suspect]
  6. EXTRA STRENGTH TYLENOL [Suspect]
     Indication: PAIN
     Dosage: DOSE UNKNOWN
  7. ADVIL LIQUI-GELS [Suspect]
     Indication: PAIN
     Dosage: DOSE UNKNOWN
  8. ADVIL PM [Suspect]
     Indication: PAIN
     Dosage: DOSE UNKNOWN
  9. ASPIRIN [Suspect]
     Indication: PAIN
     Dosage: DOSE UNKNOWN

REACTIONS (4)
  - DIZZINESS [None]
  - DRUG ADMINISTRATION ERROR [None]
  - HAEMATEMESIS [None]
  - INTENTIONAL OVERDOSE [None]
